FAERS Safety Report 5621917-6 (Version None)
Quarter: 2008Q1

REPORT INFORMATION
  Report Type: 
  Country: None (occurrence: None)
  Receive Date: 20080206
  Receipt Date: 20080130
  Transmission Date: 20080703
  Serious: Yes (Death, Life-Threatening, Other)
  Sender: FDA-Public Use
  Company Number: 08022398

PATIENT
  Age: 3 Year
  Sex: Female

DRUGS (1)
  1. LIDOCAINE [Suspect]
     Indication: HERPES VIRUS INFECTION
     Dosage: TOPICAL
     Route: 061

REACTIONS (3)
  - ORAL PAIN [None]
  - RESPIRATORY ARREST [None]
  - SOMNOLENCE [None]
